FAERS Safety Report 18774011 (Version 1)
Quarter: 2021Q1

REPORT INFORMATION
  Report Type: Spontaneous
  Country: US (occurrence: US)
  Receive Date: 20210122
  Receipt Date: 20210122
  Transmission Date: 20210419
  Serious: Yes (Other)
  Sender: FDA-Public Use
  Company Number: None

PATIENT
  Age: 73 Year
  Sex: Male
  Weight: 82 kg

DRUGS (1)
  1. BAMLANIVIMAB (EUA) (BAMLANIVIMAB) (EUA) [Suspect]
     Active Substance: BAMLANIVIMAB\ETESEVIMAB
     Indication: UPPER RESPIRATORY TRACT INFECTION
     Route: 042
     Dates: start: 20210121, end: 20210121

REACTIONS (4)
  - Bradycardia [None]
  - Anal incontinence [None]
  - Syncope [None]
  - Cardio-respiratory arrest [None]

NARRATIVE: CASE EVENT DATE: 20210121
